FAERS Safety Report 16554044 (Version 1)
Quarter: 2019Q3

REPORT INFORMATION
  Report Type: Report from Study
  Country: IT (occurrence: IT)
  Receive Date: 20190710
  Receipt Date: 20190710
  Transmission Date: 20191004
  Serious: Yes (Other)
  Sender: FDA-Public Use
  Company Number: IT-TEVA-2019-IT-1074729

PATIENT
  Age: 40 Year
  Sex: Male

DRUGS (2)
  1. DELTACORTENE 25 MG COMPRESSE [Concomitant]
     Active Substance: PREDNISONE
     Indication: TONSILLITIS
     Route: 048
     Dates: start: 20190523
  2. CIPROFLOXACIN HYDROCHLORIDE. [Suspect]
     Active Substance: CIPROFLOXACIN HYDROCHLORIDE
     Indication: TONSILLITIS
     Route: 048
     Dates: start: 20190523, end: 20190528

REACTIONS (2)
  - Rash pruritic [Recovering/Resolving]
  - Rash generalised [Recovering/Resolving]

NARRATIVE: CASE EVENT DATE: 20190527
